FAERS Safety Report 7496592-9 (Version None)
Quarter: 2011Q2

REPORT INFORMATION
  Report Type: 
  Country: None (occurrence: None)
  Receive Date: 20110523
  Receipt Date: 20110516
  Transmission Date: 20111010
  Serious: Yes (Hospitalization, Other)
  Sender: FDA-Public Use
  Company Number: SE-BAXTER-2011BH008274

PATIENT
  Sex: Male
  Weight: 110 kg

DRUGS (19)
  1. GAMMAGARD S/D [Suspect]
     Indication: IMMUNODEFICIENCY COMMON VARIABLE
     Route: 042
     Dates: start: 20110303, end: 20110303
  2. GAMMAGARD S/D [Suspect]
     Route: 042
     Dates: start: 20110303, end: 20110303
  3. INOLAXOL [Concomitant]
     Indication: PRODUCT USED FOR UNKNOWN INDICATION
     Route: 065
  4. GAMMAGARD S/D [Suspect]
     Route: 042
     Dates: start: 20110303, end: 20110303
  5. GAMMAGARD S/D [Suspect]
     Indication: HYPOGAMMAGLOBULINAEMIA
     Route: 042
     Dates: start: 20110303, end: 20110303
  6. GAMMAGARD S/D [Suspect]
     Route: 042
     Dates: start: 20110303, end: 20110303
  7. GAMMAGARD S/D [Suspect]
     Route: 042
     Dates: start: 20110303, end: 20110303
  8. GAMMAGARD S/D [Suspect]
     Route: 042
     Dates: start: 20110303, end: 20110303
  9. GAMMAGARD S/D [Suspect]
     Route: 042
     Dates: start: 20110303, end: 20110303
  10. GAMMAGARD S/D [Suspect]
     Route: 042
     Dates: start: 20110303, end: 20110303
  11. GAMMAGARD S/D [Suspect]
     Route: 042
     Dates: start: 20110303, end: 20110303
  12. GAMMANORM [Concomitant]
     Indication: PRODUCT USED FOR UNKNOWN INDICATION
     Route: 065
     Dates: start: 20021001, end: 20021001
  13. GAMMAGARD S/D [Suspect]
     Route: 042
     Dates: start: 20110303, end: 20110303
  14. GAMMAGARD S/D [Suspect]
     Route: 042
     Dates: start: 20110303, end: 20110303
  15. GAMMAGARD S/D [Suspect]
     Route: 042
     Dates: start: 20110303, end: 20110303
  16. GAMMAGARD S/D [Suspect]
     Route: 042
     Dates: start: 20110303, end: 20110303
  17. GAMMAGARD S/D [Suspect]
     Route: 042
     Dates: start: 20110303, end: 20110303
  18. GAMMAGARD S/D [Suspect]
     Route: 042
     Dates: start: 20110303, end: 20110303
  19. GAMMANORM [Concomitant]
     Indication: HYPOGAMMAGLOBULINAEMIA
     Route: 065
     Dates: start: 20030101, end: 20051201

REACTIONS (8)
  - CHEST DISCOMFORT [None]
  - MYOCARDIAL INFARCTION [None]
  - BACK PAIN [None]
  - PAIN IN EXTREMITY [None]
  - BLOOD PRESSURE INCREASED [None]
  - ABDOMINAL PAIN [None]
  - CHEST PAIN [None]
  - CHILLS [None]
